FAERS Safety Report 5913673-9 (Version None)
Quarter: 2008Q4

REPORT INFORMATION
  Report Type: 
  Country: None (occurrence: None)
  Receive Date: 20081006
  Receipt Date: 20080922
  Transmission Date: 20090506
  Serious: Yes (Other)
  Sender: FDA-Public Use
  Company Number: 239015J08USA

PATIENT
  Age: 44 Year
  Sex: Female

DRUGS (4)
  1. REBIF [Suspect]
     Indication: MULTIPLE SCLEROSIS
     Dosage: 44 MCG, 3 IN 1 WEEKS, SUBCUTANEOUS;  8.8MCG, 3 IN 1 WEEKS, SUBCUTANEOUS;  22 MCG, 3 IN 1 WEEKS, SUBC
     Route: 058
     Dates: start: 20080814, end: 20080101
  2. REBIF [Suspect]
     Indication: MULTIPLE SCLEROSIS
     Dosage: 44 MCG, 3 IN 1 WEEKS, SUBCUTANEOUS;  8.8MCG, 3 IN 1 WEEKS, SUBCUTANEOUS;  22 MCG, 3 IN 1 WEEKS, SUBC
     Route: 058
     Dates: start: 20080215, end: 20080528
  3. REBIF [Suspect]
     Indication: MULTIPLE SCLEROSIS
     Dosage: 44 MCG, 3 IN 1 WEEKS, SUBCUTANEOUS;  8.8MCG, 3 IN 1 WEEKS, SUBCUTANEOUS;  22 MCG, 3 IN 1 WEEKS, SUBC
     Route: 058
     Dates: start: 20080101, end: 20080908
  4. MOTRIN [Concomitant]

REACTIONS (5)
  - ANAEMIA [None]
  - CENTRAL NERVOUS SYSTEM LESION [None]
  - UTERINE DILATION AND CURETTAGE [None]
  - VAGINAL HAEMORRHAGE [None]
  - WHITE BLOOD CELL COUNT DECREASED [None]
